FAERS Safety Report 17766150 (Version 28)
Quarter: 2023Q2

REPORT INFORMATION
  Report Type: Report from Study
  Country: US (occurrence: US)
  Receive Date: 20200511
  Receipt Date: 20230519
  Transmission Date: 20230721
  Serious: Yes (Hospitalization, Other)
  Sender: FDA-Public Use
  Company Number: US-SHIRE-US202015863

PATIENT
  Sex: Female
  Weight: 75 kg

DRUGS (42)
  1. HUMAN IMMUNOGLOBULIN G [Suspect]
     Active Substance: HUMAN IMMUNOGLOBULIN G
     Indication: Chronic inflammatory demyelinating polyradiculoneuropathy
     Dosage: 160 GRAM, Q4WEEKS
     Route: 042
     Dates: start: 20070702
  2. HUMAN IMMUNOGLOBULIN G [Suspect]
     Active Substance: HUMAN IMMUNOGLOBULIN G
     Dosage: 160 GRAM, Q4WEEKS
     Route: 042
     Dates: start: 20141003
  3. HUMAN IMMUNOGLOBULIN G [Suspect]
     Active Substance: HUMAN IMMUNOGLOBULIN G
     Dosage: 160 GRAM, Q4WEEKS
     Route: 042
     Dates: start: 20141007
  4. HUMAN IMMUNOGLOBULIN G [Suspect]
     Active Substance: HUMAN IMMUNOGLOBULIN G
     Dosage: 160 GRAM, QD
     Route: 042
  5. DIPHENHYDRAMINE [Concomitant]
     Active Substance: DIPHENHYDRAMINE
     Route: 065
  6. VITAMIN D3 [Concomitant]
     Active Substance: CHOLECALCIFEROL
     Route: 065
  7. COLCHICINE [Concomitant]
     Active Substance: COLCHICINE
     Route: 065
  8. EPINEPHRINE [Concomitant]
     Active Substance: EPINEPHRINE
     Route: 065
  9. SODIUM CHLORIDE [Concomitant]
     Active Substance: SODIUM CHLORIDE
     Route: 065
  10. PERCOCET [Concomitant]
     Active Substance: ACETAMINOPHEN\OXYCODONE HYDROCHLORIDE
     Route: 065
  11. AMLODIPINE BESYLATE [Concomitant]
     Active Substance: AMLODIPINE BESYLATE
     Route: 065
  12. LIDOCAINE\PRILOCAINE [Concomitant]
     Active Substance: LIDOCAINE\PRILOCAINE
     Route: 065
  13. ACETAMINOPHEN [Concomitant]
     Active Substance: ACETAMINOPHEN
     Route: 065
  14. PRILOSEC [Concomitant]
     Active Substance: OMEPRAZOLE MAGNESIUM
     Route: 065
  15. METFORMIN [Concomitant]
     Active Substance: METFORMIN HYDROCHLORIDE
     Route: 065
  16. PREDNISONE [Concomitant]
     Active Substance: PREDNISONE
     Route: 065
  17. ZINC [Concomitant]
     Active Substance: ZINC
     Route: 065
  18. ALLOPURINOL [Concomitant]
     Active Substance: ALLOPURINOL
     Route: 065
  19. METOPROLOL TARTRATE [Concomitant]
     Active Substance: METOPROLOL TARTRATE
     Route: 065
  20. SODIUM CHLORIDE [Concomitant]
     Active Substance: SODIUM CHLORIDE
     Route: 065
  21. MAGNESIUM [Concomitant]
     Active Substance: MAGNESIUM
     Route: 065
  22. MECLIZINE HYDROCHLORIDE [Concomitant]
     Active Substance: MECLIZINE HYDROCHLORIDE
     Route: 065
  23. ALBUTEROL SULFATE [Concomitant]
     Active Substance: ALBUTEROL SULFATE
     Route: 065
  24. HEPARIN [Concomitant]
     Active Substance: HEPARIN SODIUM
     Route: 065
  25. POTASSIUM CHLORIDE [Concomitant]
     Active Substance: POTASSIUM CHLORIDE
     Route: 065
  26. CINNAMON [Concomitant]
     Active Substance: CINNAMON
     Route: 065
  27. MONTELUKAST SODIUM [Concomitant]
     Active Substance: MONTELUKAST SODIUM
     Route: 065
  28. VITAMIN B COMPLEX [Concomitant]
     Active Substance: CYANOCOBALAMIN\DEXPANTHENOL\NIACINAMIDE\PYRIDOXINE HYDROCHLORIDE\RIBOFLAVIN 5^-PHOSPHATE SODIUM\THIA
     Route: 065
  29. LIDOCAINE [Concomitant]
     Active Substance: LIDOCAINE
     Route: 065
  30. FERROUS SULFATE [Concomitant]
     Active Substance: FERROUS SULFATE
     Route: 065
  31. PRILOCAINE [Concomitant]
     Active Substance: PRILOCAINE
     Route: 065
  32. VANCOMYCIN [Concomitant]
     Active Substance: VANCOMYCIN
     Route: 065
  33. MONTELUKAST [Concomitant]
     Active Substance: MONTELUKAST SODIUM
     Route: 065
  34. BACLOFEN [Concomitant]
     Active Substance: BACLOFEN
     Route: 065
  35. PROLENSA [Concomitant]
     Active Substance: BROMFENAC SODIUM
     Route: 065
  36. CLARITHROMYCIN [Concomitant]
     Active Substance: CLARITHROMYCIN
     Route: 065
  37. POTASSIUM [Concomitant]
     Active Substance: POTASSIUM
     Route: 065
  38. VITAMIN B COMP [VITAMIN B COMPLEX] [Concomitant]
     Route: 065
  39. CALCITRIOL [Concomitant]
     Active Substance: CALCITRIOL
     Route: 065
  40. CALCIUM [Concomitant]
     Active Substance: CALCIUM
     Route: 065
  41. METFORMIN HYDROCHLORIDE [Concomitant]
     Active Substance: METFORMIN HYDROCHLORIDE
     Route: 065
  42. ATORVASTATIN CALCIUM [Concomitant]
     Active Substance: ATORVASTATIN CALCIUM

REACTIONS (45)
  - COVID-19 [Unknown]
  - Fall [Unknown]
  - Wrist fracture [Unknown]
  - Hip fracture [Unknown]
  - Polyp [Unknown]
  - Cardiac disorder [Unknown]
  - Diverticulitis [Unknown]
  - Gastric ulcer [Unknown]
  - Rectal haemorrhage [Unknown]
  - Pneumonia viral [Unknown]
  - Asthma [Unknown]
  - Vertigo [Unknown]
  - Abdominal pain [Unknown]
  - Diabetes mellitus [Unknown]
  - Neuropathy peripheral [Unknown]
  - Pelvic fracture [Unknown]
  - Skin haemorrhage [Unknown]
  - Gout [Unknown]
  - Illness [Unknown]
  - Fibrin D dimer increased [Unknown]
  - Infusion related hypersensitivity reaction [Unknown]
  - Sensitive skin [Unknown]
  - Seasonal allergy [Unknown]
  - Multiple allergies [Unknown]
  - Weight decreased [Unknown]
  - Treatment noncompliance [Unknown]
  - Stress [Unknown]
  - Infusion site rash [Unknown]
  - Infection [Unknown]
  - Blood pressure systolic increased [Unknown]
  - Pain [Unknown]
  - Infusion site bruising [Unknown]
  - Asthenia [Unknown]
  - Lethargy [Unknown]
  - Blood pressure increased [Unknown]
  - Vomiting [Unknown]
  - Anxiety [Unknown]
  - Rash [Unknown]
  - Malaise [Unknown]
  - Diarrhoea [Unknown]
  - Chills [Unknown]
  - Nausea [Unknown]
  - Fatigue [Unknown]
  - Dizziness [Unknown]
  - Product dose omission issue [Unknown]
